FAERS Safety Report 4294294-3 (Version None)
Quarter: 2004Q1

REPORT INFORMATION
  Report Type: 
  Country: None (occurrence: None)
  Receive Date: 20040211
  Receipt Date: 20040123
  Transmission Date: 20041129
  Serious: No
  Sender: FDA-Public Use
  Company Number: CEL-2004-00114-ROC

PATIENT
  Age: 18 Year
  Sex: Female

DRUGS (1)
  1. DEXTROMETHORPHAN HYDROBROMIDE [Suspect]
     Indication: DRUG ABUSER
     Dosage: INGESTED 200-250 TIMES
     Dates: start: 20010101, end: 20031201

REACTIONS (12)
  - BALANCE DISORDER [None]
  - DRUG ABUSER [None]
  - DRUG DEPENDENCE [None]
  - FEAR [None]
  - FEELING ABNORMAL [None]
  - GAIT DISTURBANCE [None]
  - HYPOAESTHESIA [None]
  - MUSCLE TWITCHING [None]
  - PANIC ATTACK [None]
  - PARANOIA [None]
  - THINKING ABNORMAL [None]
  - VISUAL DISTURBANCE [None]
